FAERS Safety Report 5167397-9 (Version None)
Quarter: 2006Q4

REPORT INFORMATION
  Report Type: 
  Country: None (occurrence: None)
  Receive Date: 20061130
  Receipt Date: 20061117
  Transmission Date: 20070319
  Serious: Yes (Other)
  Sender: FDA-Public Use
  Company Number: 2006143644

PATIENT
  Age: 82 Year
  Sex: Female
  Weight: 58 kg

DRUGS (8)
  1. NEURONTIN [Suspect]
     Indication: AGITATION
     Dosage: 100 MG, ORAL
     Route: 048
     Dates: start: 20060823
  2. NEURONTIN [Suspect]
     Indication: RESTLESSNESS
     Dosage: 100 MG, ORAL
     Route: 048
     Dates: start: 20060823
  3. GALANTAMINE HYDROBROMIDE [Concomitant]
  4. HALDOL [Concomitant]
  5. LASIX [Concomitant]
  6. METOPROLOL TARTRATE [Concomitant]
  7. ACETYLSALICYLIC ACID SRT [Concomitant]
  8. LEVOTHYROXINE SODIUM [Concomitant]

REACTIONS (4)
  - ADVERSE EVENT [None]
  - CONFUSIONAL STATE [None]
  - HALLUCINATION, VISUAL [None]
  - OFF LABEL USE [None]
